FAERS Safety Report 9100726 (Version 3)
Quarter: 2013Q3

REPORT INFORMATION
  Report Type: Spontaneous
  Country: US (occurrence: US)
  Receive Date: 20130215
  Receipt Date: 20130916
  Transmission Date: 20140515
  Serious: Yes (Other)
  Sender: FDA-Public Use
  Company Number: US-PFIZER INC-2013044486

PATIENT
  Age: 60 Year
  Sex: Female
  Weight: 67.12 kg

DRUGS (4)
  1. ROBITUSSIN COUGH AND CHEST CONGESTION DM [Suspect]
     Indication: BRONCHITIS
     Dosage: UNK, EVERY 8 HOURS AS NEEDED
     Dates: start: 20121215, end: 20121216
  2. ROBITUSSIN COUGH AND CHEST CONGESTION DM [Suspect]
     Indication: COUGH
  3. LISINOPRIL [Concomitant]
     Indication: HYPERTENSION
     Dosage: 10 MG, DAILY
  4. SYNTHROID [Concomitant]
     Dosage: UNK

REACTIONS (6)
  - Hallucination [Recovered/Resolved]
  - Blood pressure abnormal [Recovered/Resolved]
  - Hyperventilation [Recovered/Resolved]
  - Hypoaesthesia [Recovered/Resolved]
  - Hyperthermia [Recovered/Resolved]
  - Feeling abnormal [Recovered/Resolved]
